FAERS Safety Report 10845227 (Version 2)
Quarter: 2015Q1

REPORT INFORMATION
  Report Type: Spontaneous
  Country: US (occurrence: US)
  Receive Date: 20150220
  Receipt Date: 20150327
  Transmission Date: 20150721
  Serious: Yes (Other)
  Sender: FDA-Public Use
  Company Number: US-ABBVIE-14P-163-1297650-00

PATIENT

DRUGS (2)
  1. REMICADE [Suspect]
     Active Substance: INFLIXIMAB
     Indication: PRODUCT USED FOR UNKNOWN INDICATION
     Route: 042
  2. HUMIRA [Suspect]
     Active Substance: ADALIMUMAB
     Indication: PRODUCT USED FOR UNKNOWN INDICATION
     Route: 065
     Dates: start: 201409

REACTIONS (4)
  - Mouth ulceration [Not Recovered/Not Resolved]
  - Gastrointestinal disorder [Unknown]
  - Mouth swelling [Not Recovered/Not Resolved]
  - Lip swelling [Unknown]

NARRATIVE: CASE EVENT DATE: 2014
